FAERS Safety Report 6756157-0 (Version None)
Quarter: 2010Q2

REPORT INFORMATION
  Report Type: 
  Country: None (occurrence: None)
  Receive Date: 20100604
  Receipt Date: 20100524
  Transmission Date: 20101027
  Serious: Yes (Other)
  Sender: FDA-Public Use
  Company Number: ZA-SANOFI-AVENTIS-2010SA029705

PATIENT
  Age: 38 Year
  Sex: Female
  Weight: 87.3 kg

DRUGS (5)
  1. CLOMIPHENE CITRATE [Suspect]
     Indication: OVULATION INDUCTION
  2. MENOPUR [Suspect]
     Indication: OVULATION INDUCTION
  3. MENOPUR [Suspect]
  4. PERINDOPRIL [Concomitant]
     Indication: HYPERTENSION
  5. SIMVASTATIN [Concomitant]

REACTIONS (2)
  - RETINAL VEIN OCCLUSION [None]
  - THROMBOCYTOSIS [None]
